FAERS Safety Report 6775267-5 (Version None)
Quarter: 2010Q2

REPORT INFORMATION
  Report Type: 
  Country: None (occurrence: None)
  Receive Date: 20100617
  Receipt Date: 20100609
  Transmission Date: 20101027
  Serious: Yes (Death)
  Sender: FDA-Public Use
  Company Number: GXKR2010GB06369

PATIENT
  Age: 28 Year
  Sex: Male
  Weight: 183 kg

DRUGS (8)
  1. DIAZEPAM [Suspect]
     Route: 065
  2. DIHYDROCODEINE BITARTRATE (NGX) [Suspect]
     Indication: TOOTHACHE
  3. OXYCODONE HCL [Suspect]
  4. AMITRIPTYLINE [Suspect]
  5. NAPROXEN [Suspect]
  6. NORDAZEPAM [Suspect]
  7. NORTRIPTYLINE HCL [Suspect]
  8. ZOPICLONE [Suspect]

REACTIONS (2)
  - ACCIDENTAL OVERDOSE [None]
  - RESPIRATORY DEPRESSION [None]
